FAERS Safety Report 11269647 (Version 1)
Quarter: 2015Q3

REPORT INFORMATION
  Report Type: Spontaneous
  Country: US (occurrence: None)
  Receive Date: 20150713
  Receipt Date: 20150713
  Transmission Date: 20151125
  Serious: Yes (Death)
  Sender: FDA-Public Use
  Company Number: None

PATIENT
  Age: 62 Year
  Sex: Male
  Weight: 68.04 kg

DRUGS (9)
  1. ZYTIGA [Suspect]
     Active Substance: ABIRATERONE ACETATE
     Indication: PROSTATE CANCER METASTATIC
     Route: 048
     Dates: start: 20150426, end: 20150523
  2. CHANTIX [Concomitant]
     Active Substance: VARENICLINE TARTRATE
  3. SIMVASTATIN. [Concomitant]
     Active Substance: SIMVASTATIN
  4. ALEVE [Concomitant]
     Active Substance: NAPROXEN SODIUM
  5. PREDISONE [Concomitant]
     Active Substance: PREDNISONE
  6. HYDROCODONE [Concomitant]
     Active Substance: HYDROCODONE
  7. ADVIL [Concomitant]
     Active Substance: IBUPROFEN
  8. OXYBUTYNIN [Concomitant]
     Active Substance: OXYBUTYNIN
  9. ZYTIGA [Suspect]
     Active Substance: ABIRATERONE ACETATE
     Indication: BONE CANCER
     Route: 048
     Dates: start: 20150426, end: 20150523

REACTIONS (2)
  - Myocardial infarction [None]
  - Fall [None]

NARRATIVE: CASE EVENT DATE: 20150523
